FAERS Safety Report 7245368-6 (Version None)
Quarter: 2011Q1

REPORT INFORMATION
  Report Type: 
  Country: None (occurrence: None)
  Receive Date: 20110126
  Receipt Date: 20110119
  Transmission Date: 20110831
  Serious: Yes (Life-Threatening)
  Sender: FDA-Public Use
  Company Number: JP-ROCHE-754875

PATIENT
  Sex: Male

DRUGS (3)
  1. PACLITAXEL [Concomitant]
     Dosage: NOTE: DOSAGE IS UNCERTAIN.
     Route: 041
  2. AVASTIN [Suspect]
     Indication: LUNG ADENOCARCINOMA
     Route: 041
     Dates: start: 20100817
  3. CARBOPLATIN [Concomitant]
     Dosage: NOTE: DOSAGE IS UNCERTAIN.
     Route: 041

REACTIONS (2)
  - HAEMOPTYSIS [None]
  - INTERSTITIAL LUNG DISEASE [None]
